FAERS Safety Report 16218690 (Version 1)
Quarter: 2019Q2

REPORT INFORMATION
  Report Type: Report from Study
  Country: ZA (occurrence: ZA)
  Receive Date: 20190419
  Receipt Date: 20190419
  Transmission Date: 20190711
  Serious: Yes (Death, Hospitalization)
  Sender: FDA-Public Use
  Company Number: ZA-SA-2019SA105679

PATIENT
  Age: 67 Year
  Sex: Female

DRUGS (2)
  1. OPTISULIN (INSULIN GLARGINE) [Suspect]
     Active Substance: INSULIN GLARGINE
     Dosage: UNK
     Route: 065
     Dates: start: 20190320
  2. INSULIN GLULISINE [Suspect]
     Active Substance: INSULIN GLULISINE
     Dosage: 5 IU, TID | BS-5 UNITS | BL-5 UNITS | BB-5 UNITS
     Route: 065
     Dates: start: 20190320

REACTIONS (1)
  - Blood glucose increased [Fatal]
